FAERS Safety Report 18654326 (Version 1)
Quarter: 2020Q4

REPORT INFORMATION
  Report Type: Spontaneous
  Country: US (occurrence: US)
  Receive Date: 20201223
  Receipt Date: 20201223
  Transmission Date: 20210114
  Serious: Yes (Hospitalization)
  Sender: FDA-Public Use
  Company Number: None

PATIENT
  Age: 76 Year
  Sex: Male
  Weight: 79.8 kg

DRUGS (1)
  1. CISPLATIN 228MG [Suspect]
     Active Substance: CISPLATIN
     Dates: end: 20201109

REACTIONS (6)
  - Chills [None]
  - Pain in extremity [None]
  - COVID-19 pneumonia [None]
  - Asthenia [None]
  - Hypotension [None]
  - Pyrexia [None]

NARRATIVE: CASE EVENT DATE: 20201219
